FAERS Safety Report 21113811 (Version 1)
Quarter: 2022Q3

REPORT INFORMATION
  Report Type: Spontaneous
  Country: US (occurrence: US)
  Receive Date: 20220721
  Receipt Date: 20220721
  Transmission Date: 20221027
  Serious: No
  Sender: FDA-Public Use
  Company Number: US-PFIZER INC-PV202200026223

PATIENT
  Age: 21 Year
  Sex: Male

DRUGS (2)
  1. XELJANZ [Interacting]
     Active Substance: TOFACITINIB CITRATE
     Dosage: UNK
  2. JAKAFI [Interacting]
     Active Substance: RUXOLITINIB
     Dosage: UNK

REACTIONS (1)
  - Drug interaction [Unknown]
